FAERS Safety Report 19633971 (Version 1)
Quarter: 2021Q3

REPORT INFORMATION
  Report Type: Spontaneous
  Country: US (occurrence: US)
  Receive Date: 20210729
  Receipt Date: 20210729
  Transmission Date: 20211014
  Serious: No
  Sender: FDA-Public Use
  Company Number: None

PATIENT
  Age: 82 Year
  Sex: Female
  Weight: 82.76 kg

DRUGS (14)
  1. METOPROLOL SUCCINATE ER 25MG [Concomitant]
  2. TRAZODONE [Concomitant]
     Active Substance: TRAZODONE HYDROCHLORIDE
  3. LEVOFLOXACIN 250MG [Concomitant]
     Active Substance: LEVOFLOXACIN
  4. METFORMIN 500MG [Concomitant]
     Active Substance: METFORMIN HYDROCHLORIDE
  5. LEVAQUIN [Concomitant]
     Active Substance: LEVOFLOXACIN
  6. LASIX 20MG [Concomitant]
  7. LEXAPRO [Concomitant]
     Active Substance: ESCITALOPRAM OXALATE
  8. ESCITALOPRAM 10MG [Concomitant]
     Active Substance: ESCITALOPRAM OXALATE
  9. FOLIC ACID 1MG [Concomitant]
     Active Substance: FOLIC ACID
  10. VENTOLIN HFA [Concomitant]
     Active Substance: ALBUTEROL SULFATE
  11. SYMBICORT [Concomitant]
     Active Substance: BUDESONIDE\FORMOTEROL FUMARATE DIHYDRATE
  12. PROCRIT [Suspect]
     Active Substance: ERYTHROPOIETIN
     Indication: MYELODYSPLASTIC SYNDROME
     Dosage: ?          OTHER FREQUENCY:WEEKLY;?
     Route: 058
     Dates: start: 20190510, end: 20210729
  13. TOUJEO MAX [Concomitant]
     Active Substance: INSULIN GLARGINE
  14. ATORVASTATIN 40MG [Concomitant]
     Active Substance: ATORVASTATIN

REACTIONS (1)
  - Hospice care [None]

NARRATIVE: CASE EVENT DATE: 20210729
